FAERS Safety Report 11336011 (Version 2)
Quarter: 2015Q4

REPORT INFORMATION
  Report Type: Spontaneous
  Country: US (occurrence: US)
  Receive Date: 20150804
  Receipt Date: 20151228
  Transmission Date: 20160304
  Serious: Yes (Other)
  Sender: FDA-Public Use
  Company Number: US-SANOFI-AVENTIS-2012SA017191

PATIENT
  Age: 49 Year
  Sex: Male
  Weight: 83 kg

DRUGS (9)
  1. LISINOPRIL. [Concomitant]
     Active Substance: LISINOPRIL
  2. PLAVIX [Suspect]
     Active Substance: CLOPIDOGREL BISULFATE
     Indication: STENT PLACEMENT
     Route: 065
     Dates: start: 20070512
  3. METOPROLOL [Concomitant]
     Active Substance: METOPROLOL
  4. ASPIRIN. [Suspect]
     Active Substance: ASPIRIN
     Indication: PRODUCT USED FOR UNKNOWN INDICATION
     Route: 065
     Dates: start: 200705
  5. PLAVIX [Suspect]
     Active Substance: CLOPIDOGREL BISULFATE
     Indication: HYPERTENSION
     Route: 065
     Dates: start: 20070512
  6. NITROGLYCERINE [Concomitant]
     Active Substance: NITROGLYCERIN
     Route: 060
  7. PLAVIX [Suspect]
     Active Substance: CLOPIDOGREL BISULFATE
     Indication: MYOCARDIAL INFARCTION
     Route: 065
     Dates: start: 20070512
  8. ZOCOR [Concomitant]
     Active Substance: SIMVASTATIN
  9. PLAVIX [Suspect]
     Active Substance: CLOPIDOGREL BISULFATE
     Indication: ACUTE CORONARY SYNDROME
     Route: 065
     Dates: start: 20070512

REACTIONS (7)
  - Gastrointestinal haemorrhage [Unknown]
  - Cerebral haemorrhage [Unknown]
  - Product use issue [Unknown]
  - Haemorrhage [Unknown]
  - Ulcer haemorrhage [Unknown]
  - Rectal haemorrhage [Unknown]
  - Cardiac disorder [Unknown]

NARRATIVE: CASE EVENT DATE: 200706
